FAERS Safety Report 24760143 (Version 1)
Quarter: 2024Q4

REPORT INFORMATION
  Report Type: Spontaneous
  Country: US (occurrence: US)
  Receive Date: 20241220
  Receipt Date: 20241220
  Transmission Date: 20250115
  Serious: No
  Sender: PFIZER
  Company Number: US-PFIZER INC-202400326979

PATIENT
  Sex: Male

DRUGS (2)
  1. DIFLUCAN [Suspect]
     Active Substance: FLUCONAZOLE
     Indication: Lyme disease
     Dosage: 25 MG, ALTERNATE DAY
  2. DIFLUCAN [Suspect]
     Active Substance: FLUCONAZOLE
     Dosage: 12.5 MG, ALTERNATE DAY

REACTIONS (6)
  - Confusional state [Unknown]
  - Fatigue [Unknown]
  - Abdominal distension [Unknown]
  - Malaise [Unknown]
  - Off label use [Unknown]
  - Drug effective for unapproved indication [Unknown]
